FAERS Safety Report 10270951 (Version 1)
Quarter: 2014Q3

REPORT INFORMATION
  Report Type: Spontaneous
  Country: GB (occurrence: GB)
  Receive Date: 20140701
  Receipt Date: 20140701
  Transmission Date: 20150326
  Serious: Yes (Other)
  Sender: FDA-Public Use
  Company Number: GB-GLAXOSMITHKLINE-B1006788A

PATIENT
  Sex: Male

DRUGS (2)
  1. REQUIP [Suspect]
     Active Substance: ROPINIROLE HYDROCHLORIDE
  2. SINEMET [Suspect]
     Active Substance: CARBIDOPA\LEVODOPA
     Route: 048
     Dates: start: 20140611

REACTIONS (7)
  - Pain [Not Recovered/Not Resolved]
  - Hypoaesthesia [Unknown]
  - Asthenia [Unknown]
  - Muscle twitching [Unknown]
  - Hemiparesis [Unknown]
  - Tremor [Unknown]
  - Movement disorder [Unknown]

NARRATIVE: CASE EVENT DATE: 201406
